FAERS Safety Report 4919614-5 (Version None)
Quarter: 2006Q1

REPORT INFORMATION
  Report Type: 
  Country: None (occurrence: None)
  Receive Date: 20060215
  Receipt Date: 20060209
  Transmission Date: 20060701
  Serious: Yes (Hospitalization)
  Sender: FDA-Public Use
  Company Number: HQWYE739909FEB06

PATIENT
  Age: 48 Year
  Sex: Male

DRUGS (1)
  1. TIGECYCLINE (TIGECYCLINE, INJECTION) [Suspect]
     Indication: ABDOMINAL INFECTION
     Dosage: 100 G LOADING DOSE FOLLOWED BY 50 MG TWICE DAILY
     Dates: start: 20060123, end: 20060130

REACTIONS (1)
  - INTESTINAL OBSTRUCTION [None]
